FAERS Safety Report 7153025-X (Version None)
Quarter: 2010Q4

REPORT INFORMATION
  Report Type: 
  Country: None (occurrence: None)
  Receive Date: 20101213
  Receipt Date: 20101203
  Transmission Date: 20110411
  Serious: Yes (Hospitalization, Other)
  Sender: FDA-Public Use
  Company Number: IE-MPIJNJ-2010-03926

PATIENT

DRUGS (6)
  1. VELCADE [Suspect]
     Indication: MULTIPLE MYELOMA
     Dosage: 1.3 MG/M2, CYCLIC
     Route: 065
     Dates: start: 20100622
  2. CYCLOPHOSPHAMIDE [Concomitant]
     Indication: MULTIPLE MYELOMA
     Dosage: 300 MG, 1/WEEK
  3. DEXAMETHASONE [Concomitant]
     Indication: MULTIPLE MYELOMA
     Dosage: 40 MG, CYCLIC
  4. ALLOPURINOL [Concomitant]
     Dosage: 100 MG, UNK
  5. ZOFRAN [Concomitant]
     Dosage: 8 MG, UNK
     Route: 048
  6. VALTREX [Concomitant]
     Indication: PROPHYLAXIS
     Dosage: 500 MG, UNK

REACTIONS (4)
  - ABDOMINAL PAIN [None]
  - CONSTIPATION [None]
  - ILEUS [None]
  - RENAL CELL CARCINOMA [None]
